FAERS Safety Report 7064894-6 (Version None)
Quarter: 2010Q4

REPORT INFORMATION
  Report Type: 
  Country: None (occurrence: None)
  Receive Date: 20101019
  Receipt Date: 20101014
  Transmission Date: 20110411
  Serious: Yes (Death)
  Sender: FDA-Public Use
  Company Number: 2010SP046740

PATIENT
  Age: 41 Year
  Sex: Female

DRUGS (9)
  1. MIRTAZAPINE [Suspect]
     Indication: DEPRESSIVE SYMPTOM
     Dosage: 15 MG;QD;PO, 30 MG;QD;PO, 15 MG;TID;PO, 30 MG;QD;PO, 45 MG;QD;PO, 30 MG;QD;PO
     Route: 048
     Dates: start: 20100428, end: 20100511
  2. MIRTAZAPINE [Suspect]
     Indication: DEPRESSIVE SYMPTOM
     Dosage: 15 MG;QD;PO, 30 MG;QD;PO, 15 MG;TID;PO, 30 MG;QD;PO, 45 MG;QD;PO, 30 MG;QD;PO
     Route: 048
     Dates: start: 20100512, end: 20100518
  3. MIRTAZAPINE [Suspect]
     Indication: DEPRESSIVE SYMPTOM
     Dosage: 15 MG;QD;PO, 30 MG;QD;PO, 15 MG;TID;PO, 30 MG;QD;PO, 45 MG;QD;PO, 30 MG;QD;PO
     Route: 048
     Dates: start: 20100519, end: 20100601
  4. MIRTAZAPINE [Suspect]
     Indication: DEPRESSIVE SYMPTOM
     Dosage: 15 MG;QD;PO, 30 MG;QD;PO, 15 MG;TID;PO, 30 MG;QD;PO, 45 MG;QD;PO, 30 MG;QD;PO
     Route: 048
     Dates: start: 20100602, end: 20100615
  5. MIRTAZAPINE [Suspect]
     Indication: DEPRESSIVE SYMPTOM
     Dosage: 15 MG;QD;PO, 30 MG;QD;PO, 15 MG;TID;PO, 30 MG;QD;PO, 45 MG;QD;PO, 30 MG;QD;PO
     Route: 048
     Dates: start: 20100616, end: 20100803
  6. MIRTAZAPINE [Suspect]
     Indication: DEPRESSIVE SYMPTOM
     Dosage: 15 MG;QD;PO, 30 MG;QD;PO, 15 MG;TID;PO, 30 MG;QD;PO, 45 MG;QD;PO, 30 MG;QD;PO
     Route: 048
     Dates: start: 20100804, end: 20100810
  7. QUAZEPAM [Concomitant]
  8. FLUVOXAMINE MALEATE [Concomitant]
  9. CLOMIPRAMINE HYDROCHLORIDE [Concomitant]

REACTIONS (7)
  - AKATHISIA [None]
  - COMPLETED SUICIDE [None]
  - DEPRESSIVE SYMPTOM [None]
  - INSOMNIA [None]
  - MALAISE [None]
  - POST-TRAUMATIC STRESS DISORDER [None]
  - SOMATOFORM DISORDER [None]
